FAERS Safety Report 9087781 (Version 5)
Quarter: 2013Q2

REPORT INFORMATION
  Report Type: Spontaneous
  Country: IE (occurrence: IE)
  Receive Date: 20130131
  Receipt Date: 20130419
  Transmission Date: 20140414
  Serious: Yes (Hospitalization)
  Sender: FDA-Public Use
  Company Number: IE-BAXTER-2013BAX003759

PATIENT
  Sex: Male

DRUGS (5)
  1. GLUCOSE 5% W/V INTRAVENOUS INFUSION BP, POLYOLEFIN/POLYAMIDE BAG [Suspect]
     Indication: PRODUCT USED FOR UNKNOWN INDICATION
     Route: 042
     Dates: start: 20121107, end: 20121107
  2. OXALIPLATIN [Suspect]
     Indication: PRODUCT USED FOR UNKNOWN INDICATION
     Route: 042
     Dates: start: 20121107, end: 20121107
  3. FOLFOX [Concomitant]
     Indication: PRODUCT USED FOR UNKNOWN INDICATION
     Route: 042
  4. FOLINIC ACID [Concomitant]
     Indication: PRODUCT USED FOR UNKNOWN INDICATION
     Route: 065
     Dates: start: 20121107
  5. FLUOROURACIL [Concomitant]
     Indication: PRODUCT USED FOR UNKNOWN INDICATION
     Route: 065
     Dates: start: 20121107

REACTIONS (7)
  - Loss of consciousness [Recovered/Resolved]
  - Malaise [Recovered/Resolved]
  - Vision blurred [Recovered/Resolved]
  - Feeling abnormal [Unknown]
  - Pulse absent [Recovered/Resolved]
  - Cyanosis [Recovered/Resolved]
  - Unresponsive to stimuli [Recovered/Resolved]
